FAERS Safety Report 23161912 (Version 1)
Quarter: 2023Q4

REPORT INFORMATION
  Report Type: Report from Study
  Country: US (occurrence: US)
  Receive Date: 20231109
  Receipt Date: 20231109
  Transmission Date: 20240110
  Serious: Yes (Other)
  Sender: FDA-Public Use
  Company Number: US-ABBVIE-5485973

PATIENT
  Sex: Female

DRUGS (2)
  1. RINVOQ [Suspect]
     Active Substance: UPADACITINIB
     Indication: Rheumatoid arthritis
     Dosage: START DATE: END OF JUN/ JUL 2023, STOPPED 2 WEEKS PRIOR OF SURGERY ON 25 OCT 2023 AND A WEEK AFTE...
     Route: 048
     Dates: start: 2023, end: 202310
  2. RINVOQ [Suspect]
     Active Substance: UPADACITINIB
     Indication: Rheumatoid arthritis
     Dosage: EXTENDED RELEASE , STRENGTH 15 MG, ONE TIME A DAY BY MOUTH
     Route: 048
     Dates: start: 20231101

REACTIONS (1)
  - Spinal disorder [Unknown]

NARRATIVE: CASE EVENT DATE: 20230101
